FAERS Safety Report 7334451-2 (Version None)
Quarter: 2011Q1

REPORT INFORMATION
  Report Type: 
  Country: None (occurrence: None)
  Receive Date: 20110307
  Receipt Date: 20110228
  Transmission Date: 20110831
  Serious: Yes (Death, Other)
  Sender: FDA-Public Use
  Company Number: JP-CELGENEUS-087-21880-10111399

PATIENT
  Sex: Female

DRUGS (14)
  1. VALTREX [Concomitant]
     Indication: PROPHYLAXIS
     Dosage: 1 TABLET
     Route: 048
  2. ALLEGRA [Concomitant]
     Dosage: 2 TABLET
     Route: 048
  3. REVLIMID [Suspect]
     Indication: MULTIPLE MYELOMA
     Dosage: 10 MILLIGRAM
     Route: 048
     Dates: start: 20100813, end: 20100902
  4. DOGMATYL [Concomitant]
     Dosage: 50 MILLIGRAM
     Route: 065
  5. METHYCOOL [Concomitant]
     Dosage: 3 TABLET
     Route: 048
  6. GANATON [Concomitant]
     Indication: PROPHYLAXIS
     Dosage: 3 TABLET
     Route: 048
  7. REVLIMID [Suspect]
     Dosage: 10 MILLIGRAM
     Route: 048
     Dates: start: 20100910, end: 20100930
  8. LENADEX [Suspect]
     Dosage: 30 MILLIGRAM
     Route: 048
     Dates: start: 20100910, end: 20101001
  9. UBRETID [Concomitant]
     Dosage: 1 TABLET
     Route: 048
  10. GASTER D [Concomitant]
     Indication: PROPHYLAXIS
     Dosage: 20 MILLIGRAM
     Route: 065
  11. LENADEX [Suspect]
     Indication: MULTIPLE MYELOMA
     Dosage: 30 MILLIGRAM
     Route: 048
     Dates: start: 20100813, end: 20100903
  12. BAKTAR [Concomitant]
     Indication: PROPHYLAXIS
     Dosage: 1 TABLET
     Route: 048
  13. NEUPOGEN [Concomitant]
     Indication: NEUTROPHIL COUNT DECREASED
     Route: 065
     Dates: start: 20101015
  14. REVLIMID [Suspect]
     Dosage: 10 MILLIGRAM
     Route: 048
     Dates: start: 20101015, end: 20101023

REACTIONS (7)
  - NEOPLASM MALIGNANT [None]
  - PANCYTOPENIA [None]
  - DEHYDRATION [None]
  - SHOCK [None]
  - SEPSIS [None]
  - MULTIPLE MYELOMA [None]
  - HYPERNATRAEMIA [None]
